FAERS Safety Report 7199117-0 (Version None)
Quarter: 2010Q4

REPORT INFORMATION
  Report Type: 
  Country: None (occurrence: None)
  Receive Date: 20101228
  Receipt Date: 20101222
  Transmission Date: 20110411
  Serious: Yes (Hospitalization)
  Sender: FDA-Public Use
  Company Number: JP-BAYER-201015088BYL

PATIENT
  Sex: Male

DRUGS (10)
  1. BETAFERON [Suspect]
     Indication: MULTIPLE SCLEROSIS
     Dosage: 8MIU/QOD
     Route: 058
     Dates: start: 20020816, end: 20101004
  2. BETAFERON [Suspect]
     Dosage: 8 MIU, QOD
     Route: 058
     Dates: start: 20101125
  3. DIAZEPAM [Concomitant]
     Dosage: 4 MG, QD
     Route: 048
  4. GABALON [Concomitant]
     Dosage: 15 MG, QD
     Route: 048
  5. LOXONIN [Concomitant]
     Dosage: 180 MG, QD
     Route: 048
  6. TERNELIN [Concomitant]
     Dosage: 3 MG, QD
     Route: 048
  7. TEGRETOL [Concomitant]
     Dosage: 400 MG, QD
     Route: 048
  8. TAKEPRON [Concomitant]
     Dosage: 15 MG, QID
     Route: 048
  9. FOSAMAC [Concomitant]
     Dosage: 5 MG, QD
     Route: 048
  10. PREDONINE [Concomitant]
     Dosage: 7.5 MG, QD

REACTIONS (2)
  - INJECTION SITE CELLULITIS [None]
  - PYREXIA [None]
